FAERS Safety Report 4591345-3 (Version None)
Quarter: 2005Q1

REPORT INFORMATION
  Report Type: 
  Country: None (occurrence: None)
  Receive Date: 20050225
  Receipt Date: 20050218
  Transmission Date: 20050727
  Serious: Yes (Hospitalization)
  Sender: FDA-Public Use
  Company Number: PHRM2005FR00888

PATIENT
  Age: 93 Year
  Sex: Female
  Weight: 70 kg

DRUGS (6)
  1. DIFFU K [Concomitant]
  2. ISKEDYL [Concomitant]
  3. OMEPRAZOLE [Concomitant]
  4. STILNOX [Concomitant]
  5. TRIVASTAL [Concomitant]
  6. COTAREG [Suspect]
     Dosage: 1 DF, QD
     Route: 048
     Dates: start: 20041215, end: 20050114

REACTIONS (4)
  - CEREBROVASCULAR ACCIDENT [None]
  - GOUT [None]
  - HYPERURICAEMIA [None]
  - RENAL FAILURE ACUTE [None]
